FAERS Safety Report 5201006-5 (Version None)
Quarter: 2007Q1

REPORT INFORMATION
  Report Type: 
  Country: None (occurrence: None)
  Receive Date: 20070108
  Receipt Date: 20061229
  Transmission Date: 20070707
  Serious: Yes (Hospitalization)
  Sender: FDA-Public Use
  Company Number: JP-JPN-A200604890

PATIENT
  Age: 66 Year
  Sex: Male

DRUGS (18)
  1. VALTREX [Suspect]
     Indication: HERPES ZOSTER
     Dosage: 1000MG PER DAY
     Route: 048
     Dates: start: 20061109, end: 20061112
  2. ADALAT [Concomitant]
     Indication: HYPERTENSION
     Dosage: 10MG PER DAY
     Route: 048
  3. SELBEX [Concomitant]
     Indication: GASTRIC ULCER
     Dosage: 1.5MG PER DAY
     Route: 048
  4. BERIZYM [Concomitant]
     Indication: DYSPEPSIA
     Route: 048
  5. HERBESSER [Concomitant]
     Indication: HYPERTENSION
     Dosage: 180MG PER DAY
     Route: 048
  6. MUCOSTA [Concomitant]
     Indication: GASTRIC ULCER
     Dosage: 300MG PER DAY
     Route: 048
  7. AMOBAN [Concomitant]
     Indication: INSOMNIA
     Dosage: 7.5MG PER DAY
     Route: 048
  8. CALTAN [Concomitant]
     Dosage: 4500MG PER DAY
     Route: 048
  9. STOGAR [Concomitant]
     Indication: GASTRIC ULCER
     Dosage: 5MG PER DAY
     Route: 048
  10. EURODIN [Concomitant]
     Indication: INSOMNIA
     Dosage: 1MG PER DAY
     Route: 048
  11. NORVASC [Concomitant]
     Indication: HYPERTENSION
     Dosage: 10MG PER DAY
     Route: 048
  12. CARDENALIN [Concomitant]
     Indication: HYPERTENSION
     Dosage: 2MG PER DAY
     Route: 048
  13. DIART [Concomitant]
     Dosage: 30MG PER DAY
     Route: 048
  14. ASPIRIN [Concomitant]
     Indication: ANGINA PECTORIS
     Dosage: 100MG PER DAY
     Route: 048
  15. OLMETEC [Concomitant]
     Indication: HYPERTENSION
     Dosage: 20MG PER DAY
     Route: 048
  16. NITRODERM [Concomitant]
     Indication: ANGINA PECTORIS
     Dosage: 25MG PER DAY
     Route: 062
  17. MAGLAX [Concomitant]
     Indication: CONSTIPATION
     Dosage: 1000MG PER DAY
     Route: 048
  18. ZOVIRAX [Concomitant]
     Indication: HERPES ZOSTER
     Route: 061
     Dates: start: 20061107, end: 20061121

REACTIONS (6)
  - CONFUSIONAL STATE [None]
  - CORNEAL LESION [None]
  - DELIRIUM [None]
  - HALLUCINATION [None]
  - MENTAL DISORDER [None]
  - SOMNOLENCE [None]
